FAERS Safety Report 23338433 (Version 1)
Quarter: 2023Q4

REPORT INFORMATION
  Report Type: Spontaneous
  Country: US (occurrence: US)
  Receive Date: 20231226
  Receipt Date: 20231226
  Transmission Date: 20240110
  Serious: Yes (Hospitalization, Other)
  Sender: FDA-Public Use
  Company Number: US-GLAXOSMITHKLINE-US2023GSK178479

PATIENT

DRUGS (1)
  1. BUPROPION [Suspect]
     Active Substance: BUPROPION
     Indication: Product used for unknown indication
     Dosage: UNK

REACTIONS (7)
  - Intentional overdose [Unknown]
  - Seizure [Unknown]
  - Mental impairment [Unknown]
  - Sinus tachycardia [Recovering/Resolving]
  - Ventricular tachycardia [Recovering/Resolving]
  - Haemodynamic instability [Recovering/Resolving]
  - Disease recurrence [Recovering/Resolving]
